FAERS Safety Report 24425245 (Version 6)
Quarter: 2025Q1

REPORT INFORMATION
  Report Type: Report from Study
  Country: US (occurrence: US)
  Receive Date: 20241011
  Receipt Date: 20250209
  Transmission Date: 20250408
  Serious: Yes (Hospitalization, Other)
  Sender: ABBVIE
  Company Number: US-ABBVIE-5956554

PATIENT
  Age: 77 Year
  Sex: Female
  Weight: 95 kg

DRUGS (9)
  1. SYNTHROID [Suspect]
     Active Substance: LEVOTHYROXINE SODIUM
     Indication: Hypothyroidism
     Dosage: FORM STRENGTH: 112 MICROGRAM
     Route: 048
     Dates: start: 20240829
  2. SYNTHROID [Suspect]
     Active Substance: LEVOTHYROXINE SODIUM
     Indication: Hypothyroidism
     Dosage: 100 MICROGRAM
     Route: 048
     Dates: end: 20240828
  3. METHENAMINE HIPPURATE [Concomitant]
     Active Substance: METHENAMINE HIPPURATE
     Indication: Urinary tract infection
  4. METHENAMINE HIPPURATE [Concomitant]
     Active Substance: METHENAMINE HIPPURATE
     Indication: Urinary tract infection
  5. VENTOLIN [Concomitant]
     Active Substance: ALBUTEROL SULFATE
     Indication: Asthma
     Route: 055
  6. VENTOLIN [Concomitant]
     Active Substance: ALBUTEROL SULFATE
     Indication: Asthma
     Route: 055
  7. VENTOLIN [Concomitant]
     Active Substance: ALBUTEROL SULFATE
     Indication: Asthma
     Route: 055
  8. ALBUTEROL [Concomitant]
     Active Substance: ALBUTEROL
     Indication: Product used for unknown indication
  9. HERPECIN [Concomitant]
     Active Substance: DIMETHICONE\MERADIMATE\OCTINOXATE\OCTISALATE\OXYBENZONE
     Indication: Product used for unknown indication

REACTIONS (67)
  - Thyroid cancer [Recovered/Resolved]
  - Vision blurred [Unknown]
  - Dyspnoea [Unknown]
  - Lymphoma [Recovered/Resolved]
  - Dysphagia [Recovered/Resolved]
  - Thyroid disorder [Recovered/Resolved]
  - Transient ischaemic attack [Not Recovered/Not Resolved]
  - Fall [Recovered/Resolved]
  - COVID-19 [Recovered/Resolved]
  - Insomnia [Unknown]
  - Vomiting [Unknown]
  - Headache [Unknown]
  - Tremor [Unknown]
  - Migraine [Not Recovered/Not Resolved]
  - Pyrexia [Unknown]
  - Diarrhoea [Unknown]
  - Decreased appetite [Unknown]
  - Weight decreased [Not Recovered/Not Resolved]
  - Diabetic neuropathy [Not Recovered/Not Resolved]
  - Hypertonic bladder [Not Recovered/Not Resolved]
  - Benign neoplasm of thyroid gland [Recovered/Resolved]
  - Muscular weakness [Not Recovered/Not Resolved]
  - Type 2 diabetes mellitus [Not Recovered/Not Resolved]
  - Peripheral swelling [Not Recovered/Not Resolved]
  - COVID-19 [Recovered/Resolved]
  - Sleep apnoea syndrome [Unknown]
  - Gastrooesophageal reflux disease [Unknown]
  - Blood potassium decreased [Unknown]
  - Gout [Unknown]
  - Blood cholesterol increased [Unknown]
  - Muscle disorder [Unknown]
  - Gastrointestinal disorder [Unknown]
  - Diabetes mellitus [Unknown]
  - Blood glucose decreased [Unknown]
  - Gastrointestinal ulcer [Unknown]
  - Anxiety [Unknown]
  - Fluid retention [Unknown]
  - Hypertension [Unknown]
  - Swelling [Unknown]
  - Herpes zoster [Unknown]
  - Neuralgia [Unknown]
  - Neuralgia [Unknown]
  - Incontinence [Unknown]
  - Fibromyalgia [Unknown]
  - Impaired gastric emptying [Unknown]
  - Nephrolithiasis [Unknown]
  - Lipoma [Unknown]
  - Basal cell carcinoma [Unknown]
  - Lipoma [Unknown]
  - Anaemia [Unknown]
  - Fungal infection [Unknown]
  - Ankle operation [Unknown]
  - Hysterectomy [Unknown]
  - Appendicectomy [Unknown]
  - Gallbladder operation [Unknown]
  - Dental operation [Unknown]
  - Hiatus hernia [Unknown]
  - Gastritis [Unknown]
  - Gingival ulceration [Unknown]
  - Carpal tunnel syndrome [Unknown]
  - Arteriovenous malformation [Unknown]
  - Rotator cuff syndrome [Unknown]
  - Cataract [Unknown]
  - Nephrolithiasis [Recovered/Resolved]
  - Cataract [Unknown]
  - Coronary arterial stent insertion [Unknown]
  - Thyroid mass [Unknown]

NARRATIVE: CASE EVENT DATE: 19630201
